FAERS Safety Report 8261369-3 (Version None)
Quarter: 2012Q2

REPORT INFORMATION
  Report Type: 
  Country: None (occurrence: None)
  Receive Date: 20120405
  Receipt Date: 20120328
  Transmission Date: 20120825
  Serious: Yes (Other)
  Sender: FDA-Public Use
  Company Number: HU-PFIZER INC-2012081475

PATIENT
  Age: 75 Year
  Sex: Female
  Weight: 62 kg

DRUGS (2)
  1. PENTOXIFYLLINE [Concomitant]
     Dosage: UNK
     Dates: start: 19980101
  2. XALATAN [Suspect]
     Dosage: 0.05 MG, 2X/DAY, IN THE MORNING AND IN THE EVENING
     Dates: start: 20120101

REACTIONS (2)
  - VISUAL ACUITY REDUCED [None]
  - VISION BLURRED [None]
